FAERS Safety Report 16928543 (Version 3)
Quarter: 2025Q1

REPORT INFORMATION
  Report Type: Spontaneous
  Country: CZ (occurrence: CZ)
  Receive Date: 20191017
  Receipt Date: 20250328
  Transmission Date: 20250409
  Serious: Yes (Hospitalization, Other)
  Sender: AUROBINDO
  Company Number: CZ-AUROBINDO-AUR-APL-2019-067511

PATIENT
  Age: 62 Year
  Sex: Male

DRUGS (6)
  1. MELPHALAN [Suspect]
     Active Substance: MELPHALAN
     Indication: Bone marrow conditioning regimen
     Route: 065
     Dates: start: 201804
  2. THYMOCYTE IMMUNE GLOBULIN NOS [Suspect]
     Active Substance: THYMOCYTE IMMUNE GLOBULIN NOS
     Indication: Bone marrow conditioning regimen
     Route: 065
     Dates: start: 201804
  3. FLUDARABINE [Suspect]
     Active Substance: FLUDARABINE PHOSPHATE
     Indication: Bone marrow conditioning regimen
     Route: 065
     Dates: start: 201804
  4. ACYCLOVIR [Concomitant]
     Active Substance: ACYCLOVIR
     Indication: Herpes simplex
     Route: 065
  5. GANCICLOVIR [Concomitant]
     Active Substance: GANCICLOVIR
     Indication: Herpes simplex
     Route: 065
  6. FOSCAVIR [Concomitant]
     Active Substance: FOSCARNET SODIUM
     Indication: Herpes simplex
     Route: 065

REACTIONS (8)
  - Sepsis [Unknown]
  - Cytopenia [Unknown]
  - Graft versus host disease in gastrointestinal tract [Unknown]
  - Haemolysis [Unknown]
  - Bronchopulmonary aspergillosis [Unknown]
  - Colitis [Unknown]
  - Pyrexia [Unknown]
  - Haemophagocytic lymphohistiocytosis [Unknown]
